FAERS Safety Report 8974419 (Version 1)
Quarter: 2012Q4

REPORT INFORMATION
  Report Type: Spontaneous
  Country: US (occurrence: None)
  Receive Date: 20121212
  Receipt Date: 20121212
  Transmission Date: 20130627
  Serious: Yes (Death, Hospitalization, Other)
  Sender: FDA-Public Use
  Company Number: FK201203732

PATIENT
  Age: 22 Month
  Sex: Female

DRUGS (1)
  1. VANCOMYCIN [Suspect]
     Indication: STAPHYLOCOCCAL INFECTION
     Route: 042

REACTIONS (8)
  - Drug reaction with eosinophilia and systemic symptoms [None]
  - Eosinophilic myocarditis [None]
  - Cardiac failure congestive [None]
  - Thrombocytopenia [None]
  - Haemoglobin decreased [None]
  - Hypoalbuminaemia [None]
  - Pulmonary oedema [None]
  - Cardio-respiratory arrest [None]
